FAERS Safety Report 15818045 (Version 2)
Quarter: 2019Q1

REPORT INFORMATION
  Report Type: Spontaneous
  Country: US (occurrence: US)
  Receive Date: 20190113
  Receipt Date: 20190322
  Transmission Date: 20190417
  Serious: Yes (Other)
  Sender: FDA-Public Use
  Company Number: US-COOPERSURGICAL, INC.-US-2018CPS018702

PATIENT
  Sex: Female

DRUGS (1)
  1. PARAGARD T 380A [Suspect]
     Active Substance: COPPER
     Indication: CONTRACEPTION
     Route: 065

REACTIONS (5)
  - Off label use [Unknown]
  - Maternal exposure during pregnancy [Unknown]
  - Device dislocation [Not Recovered/Not Resolved]
  - Normal newborn [Unknown]
  - Pregnancy with contraceptive device [Unknown]
